FAERS Safety Report 9190008 (Version 2)
Quarter: 2013Q2

REPORT INFORMATION
  Report Type: Spontaneous
  Country: US (occurrence: US)
  Receive Date: 20130326
  Receipt Date: 20130506
  Transmission Date: 20140414
  Serious: Yes (Other)
  Sender: FDA-Public Use
  Company Number: US-PFIZER INC-2013096124

PATIENT
  Age: 82 Year
  Sex: Female
  Weight: 69.39 kg

DRUGS (7)
  1. SUTENT [Suspect]
     Indication: RENAL CANCER
     Dosage: UNK
     Dates: start: 20130305
  2. CALCIUM CITRATE/COLECALCIFEROL [Concomitant]
     Dosage: UNK
  3. GLIMEPIRIDE [Concomitant]
     Dosage: UNK
  4. LISINOPRIL [Concomitant]
     Dosage: UNK
  5. METOPROLOL SUCCINATE [Concomitant]
     Dosage: UNK
  6. PIOGLITAZONE HYDROCHLORIDE [Concomitant]
     Dosage: UNK
  7. SIMVASTATIN [Concomitant]
     Dosage: UNK

REACTIONS (3)
  - Renal failure [Unknown]
  - Fall [Unknown]
  - Anaemia [Unknown]
